FAERS Safety Report 25857181 (Version 1)
Quarter: 2025Q3

REPORT INFORMATION
  Report Type: Spontaneous
  Country: EU (occurrence: EU)
  Receive Date: 20250929
  Receipt Date: 20250929
  Transmission Date: 20251020
  Serious: Yes (Hospitalization, Other)
  Sender: AUROBINDO
  Company Number: EU-AUROBINDO-AUR-APL-2025-047751

PATIENT
  Age: 16 Year
  Sex: Female

DRUGS (8)
  1. AMOXICILLIN\CLAVULANIC ACID [Suspect]
     Active Substance: AMOXICILLIN\CLAVULANIC ACID
     Indication: Postpericardiotomy syndrome
     Route: 048
  2. GENTAMICIN [Suspect]
     Active Substance: GENTAMICIN
     Indication: Postpericardiotomy syndrome
     Route: 065
  3. IBUPROFEN [Concomitant]
     Active Substance: IBUPROFEN
     Indication: Postpericardiotomy syndrome
     Route: 065
  4. PREDNISOLONE [Concomitant]
     Active Substance: PREDNISOLONE
     Indication: Postpericardiotomy syndrome
     Route: 065
  5. CLINDAMYCIN [Concomitant]
     Active Substance: CLINDAMYCIN
     Indication: Postpericardiotomy syndrome
     Route: 048
  6. AMOXICILLIN\CLAVULANIC ACID [Concomitant]
     Active Substance: AMOXICILLIN\CLAVULANIC ACID
     Indication: Postpericardiotomy syndrome
     Route: 042
  7. GENTAMICIN [Concomitant]
     Active Substance: GENTAMICIN
     Indication: Postpericardiotomy syndrome
     Route: 042
  8. CIPROFLOXACIN [Concomitant]
     Active Substance: CIPROFLOXACIN
     Indication: Postpericardiotomy syndrome
     Route: 065

REACTIONS (1)
  - Drug ineffective [Unknown]
